FAERS Safety Report 20673486 (Version 1)
Quarter: 2022Q2

REPORT INFORMATION
  Report Type: Spontaneous
  Country: IE (occurrence: IE)
  Receive Date: 20220405
  Receipt Date: 20220405
  Transmission Date: 20220720
  Serious: Yes (Life-Threatening, Other)
  Sender: FDA-Public Use
  Company Number: IE-TEVA-2022-IE-2023532

PATIENT

DRUGS (1)
  1. DOXORUBICIN [Suspect]
     Active Substance: DOXORUBICIN
     Indication: Anaplastic thyroid cancer
     Dosage: ONCE WEEKLY FOR 2 WEEKS FOR INITIAL 2 CYCLES, THEN ONCE WEEKLY FOR 3 WEEKS FOLLOWED BY 1 WEEK GAP RE
     Route: 042

REACTIONS (4)
  - Dysphagia [Unknown]
  - Dermatitis [Unknown]
  - Fatigue [Unknown]
  - Anaemia [Unknown]
